FAERS Safety Report 11686983 (Version 3)
Quarter: 2016Q3

REPORT INFORMATION
  Report Type: Spontaneous
  Country: None (occurrence: US)
  Receive Date: 20151030
  Receipt Date: 20160811
  Transmission Date: 20161109
  Serious: Yes (Other)
  Sender: FDA-Public Use
  Company Number: US-TEVA-604825USA

PATIENT
  Sex: Female

DRUGS (1)
  1. ZECUITY [Suspect]
     Active Substance: SUMATRIPTAN SUCCINATE
     Indication: MIGRAINE
     Dosage: 6.5 MG/4 HRS
     Route: 062
     Dates: start: 201510

REACTIONS (6)
  - Drug ineffective [Not Recovered/Not Resolved]
  - Application site scar [Recovering/Resolving]
  - Visual impairment [Unknown]
  - Application site urticaria [Recovered/Resolved]
  - Application site discolouration [Recovering/Resolving]
  - Application site erythema [Recovering/Resolving]

NARRATIVE: CASE EVENT DATE: 2015
